FAERS Safety Report 8772719 (Version 7)
Quarter: 2013Q1

REPORT INFORMATION
  Report Type: Spontaneous
  Country: US (occurrence: US)
  Receive Date: 20120905
  Receipt Date: 20130307
  Transmission Date: 20140127
  Serious: Yes (Hospitalization, Other)
  Sender: FDA-Public Use
  Company Number: US-009507513-1203USA00314

PATIENT
  Sex: Female
  Weight: 61.22 kg

DRUGS (5)
  1. PACERONE [Concomitant]
     Indication: ATRIAL FIBRILLATION
     Dosage: 100 MG, QD
     Dates: start: 2002
  2. FOSAMAX [Suspect]
     Indication: OSTEOPOROSIS
     Dosage: 70 MG, QW
     Route: 048
     Dates: start: 20060420, end: 20070926
  3. FOSAMAX [Suspect]
     Dosage: 70 MG, QW
     Route: 048
     Dates: start: 200803, end: 2011
  4. FOSAMAX [Suspect]
     Indication: OSTEOPOROSIS
     Dosage: 70 MG, QW
     Route: 048
  5. ALENDRONATE SODIUM [Suspect]
     Indication: OSTEOPOROSIS
     Dosage: 70 MG, QW
     Route: 048

REACTIONS (46)
  - Pubis fracture [Unknown]
  - Nail operation [Unknown]
  - Pathological fracture [Recovered/Resolved]
  - Cataract operation [Unknown]
  - Open reduction of fracture [Unknown]
  - Packed red blood cell transfusion [Unknown]
  - Femur fracture [Recovering/Resolving]
  - Open reduction of fracture [Recovering/Resolving]
  - Femur fracture [Unknown]
  - Urinary tract infection [Unknown]
  - Fall [Unknown]
  - Contusion [Unknown]
  - Joint injection [Unknown]
  - Rib fracture [Unknown]
  - Arteriosclerosis [Unknown]
  - Hypertension [Unknown]
  - Inguinal hernia repair [Unknown]
  - Benign breast lump removal [Unknown]
  - Urinary tract infection [Unknown]
  - Chest discomfort [Unknown]
  - Hyperthyroidism [Unknown]
  - Pelvi-ureteric obstruction [Unknown]
  - Weight decreased [Unknown]
  - Road traffic accident [Unknown]
  - Hyperglycaemia [Unknown]
  - Hyperlipidaemia [Unknown]
  - Glaucoma [Unknown]
  - Joint dislocation [Unknown]
  - Osteoarthritis [Unknown]
  - Cystopexy [Unknown]
  - Supraventricular tachycardia [Unknown]
  - Asthenia [Unknown]
  - Pyrexia [Unknown]
  - Pyrexia [Unknown]
  - Nausea [Unknown]
  - Nausea [Unknown]
  - Diarrhoea [Unknown]
  - Constipation [Unknown]
  - Tooth disorder [Unknown]
  - Tooth extraction [Unknown]
  - Ingrowing nail [Unknown]
  - Nail operation [Unknown]
  - Depression [Recovering/Resolving]
  - Cataract [Unknown]
  - Femur fracture [Unknown]
  - Arrhythmia [Unknown]
